FAERS Safety Report 16686414 (Version 2)
Quarter: 2019Q3

REPORT INFORMATION
  Report Type: Spontaneous
  Country: FR (occurrence: FR)
  Receive Date: 20190809
  Receipt Date: 20190822
  Transmission Date: 20191004
  Serious: Yes (Other)
  Sender: FDA-Public Use
  Company Number: FR-AUROBINDO-AUR-APL-2019-045620

PATIENT

DRUGS (6)
  1. FLUCONAZOLE ARROW CAPSULE, HARD 50MG [Suspect]
     Active Substance: FLUCONAZOLE
     Indication: ORAL CANDIDIASIS
     Dosage: 50 MILLIGRAM, ONCE A DAY
     Route: 048
     Dates: start: 20190501
  2. VALACYCLOVIR [Suspect]
     Active Substance: VALACYCLOVIR HYDROCHLORIDE
     Indication: HERPES SIMPLEX
     Dosage: 4 DOSAGE FORM, ONCE A DAY
     Route: 048
     Dates: start: 20190504
  3. BILTRICIDE [Suspect]
     Active Substance: PRAZIQUANTEL
     Indication: ORAL CANDIDIASIS
     Dosage: 3000 MILLIGRAM,1 TOTAL
     Route: 048
     Dates: start: 20190430
  4. STROMECTOL [Suspect]
     Active Substance: IVERMECTIN
     Indication: ORAL CANDIDIASIS
     Dosage: 5 DOSAGE FORM,1 TOTAL
     Route: 048
     Dates: start: 20190430
  5. ESKAZOLE [Suspect]
     Active Substance: ALBENDAZOLE
     Indication: ORAL CANDIDIASIS
     Dosage: 400 MILLIGRAM, ONCE A DAY
     Route: 048
     Dates: start: 20190430
  6. ADIAZINE [Suspect]
     Active Substance: SULFADIAZINE
     Indication: CEREBRAL TOXOPLASMOSIS
     Dosage: 12 DOSAGE FORM, ONCE A DAY
     Route: 048
     Dates: start: 20190430

REACTIONS (1)
  - Mixed liver injury [Recovering/Resolving]

NARRATIVE: CASE EVENT DATE: 20190506
